FAERS Safety Report 7374430-2 (Version None)
Quarter: 2011Q1

REPORT INFORMATION
  Report Type: 
  Country: None (occurrence: None)
  Receive Date: 20110325
  Receipt Date: 20110228
  Transmission Date: 20110831
  Serious: No
  Sender: FDA-Public Use
  Company Number: US-B.I. PHARMACEUTICALS,INC./RIDGEFIELD-2011-BP-05667BP

PATIENT
  Sex: Female

DRUGS (9)
  1. MORPHINE [Concomitant]
     Indication: BACK PAIN
  2. FOSAMAX [Concomitant]
     Indication: OSTEOPOROSIS
  3. FOLATE [Concomitant]
     Indication: PROPHYLAXIS
  4. DIGOXIN [Concomitant]
     Indication: ATRIAL FIBRILLATION
  5. ATENOLOL [Concomitant]
     Indication: ATRIAL FIBRILLATION
  6. STUDY MEDICATION [Concomitant]
     Indication: RHEUMATOID ARTHRITIS
     Dates: start: 20080101
  7. METHOTREXATE [Concomitant]
     Indication: RHEUMATOID ARTHRITIS
  8. PRADAXA [Suspect]
     Indication: ATRIAL FIBRILLATION
     Dosage: 300 MG
     Route: 048
     Dates: start: 20110223
  9. DILTIAZEM HCL [Concomitant]
     Indication: ATRIAL FIBRILLATION

REACTIONS (4)
  - ABDOMINAL PAIN UPPER [None]
  - DIARRHOEA [None]
  - NAUSEA [None]
  - VOMITING [None]
